FAERS Safety Report 23517182 (Version 1)
Quarter: 2024Q1

REPORT INFORMATION
  Report Type: Spontaneous
  Country: US (occurrence: US)
  Receive Date: 20240213
  Receipt Date: 20240213
  Transmission Date: 20240410
  Serious: Yes (Other)
  Sender: FDA-Public Use
  Company Number: US-ViiV Healthcare Limited-107356

PATIENT
  Sex: Female

DRUGS (1)
  1. RUKOBIA [Suspect]
     Active Substance: FOSTEMSAVIR TROMETHAMINE
     Indication: HIV infection
     Dosage: UNK (EXTENDED RELEASE TABLET)

REACTIONS (2)
  - Electrocardiogram QT prolonged [Unknown]
  - Abdominal discomfort [Unknown]
